FAERS Safety Report 17746646 (Version 1)
Quarter: 2020Q2

REPORT INFORMATION
  Report Type: Spontaneous
  Country: US (occurrence: US)
  Receive Date: 20200505
  Receipt Date: 20200505
  Transmission Date: 20200714
  Serious: No
  Sender: FDA-Public Use
  Company Number: US-BIOGEN-2020BI00870145

PATIENT
  Sex: Female

DRUGS (1)
  1. TECFIDERA [Suspect]
     Active Substance: DIMETHYL FUMARATE
     Indication: MULTIPLE SCLEROSIS
     Route: 065
     Dates: start: 20160325, end: 20180918

REACTIONS (2)
  - Tongue fungal infection [Not Recovered/Not Resolved]
  - Hypersensitivity [Recovered/Resolved]
